FAERS Safety Report 9197492 (Version 1)
Quarter: 2013Q1

REPORT INFORMATION
  Report Type: Spontaneous
  Country: US (occurrence: None)
  Receive Date: 20120709
  Receipt Date: 20120709
  Transmission Date: 20140127
  Serious: Yes (Other)
  Sender: FDA-Public Use
  Company Number: PHEH2011US05455

PATIENT
  Age: 50 Year
  Sex: Female

DRUGS (1)
  1. GLEEVEC [Suspect]
     Dates: start: 20110902

REACTIONS (7)
  - Syncope [None]
  - Back pain [None]
  - Chest pain [None]
  - Photophobia [None]
  - Pallor [None]
  - Anaemia [None]
  - Spinal pain [None]
